FAERS Safety Report 5041008-5 (Version None)
Quarter: 2006Q3

REPORT INFORMATION
  Report Type: 
  Country: None (occurrence: None)
  Receive Date: 20060703
  Receipt Date: 20051123
  Transmission Date: 20061208
  Serious: No
  Sender: FDA-Public Use
  Company Number: US-GLAXOSMITHKLINE-A0583412A

PATIENT
  Age: 58 Year
  Sex: Male

DRUGS (3)
  1. PARNATE [Suspect]
     Indication: DEPRESSION
     Dosage: 20MG THREE TIMES PER DAY
     Route: 048
  2. CLONAZEPAM [Concomitant]
  3. LOPID [Concomitant]

REACTIONS (1)
  - INSOMNIA [None]
